FAERS Safety Report 4584611-9 (Version None)
Quarter: 2005Q1

REPORT INFORMATION
  Report Type: 
  Country: None (occurrence: None)
  Receive Date: 20050216
  Receipt Date: 20030521
  Transmission Date: 20050727
  Serious: Yes (Disabling, Other)
  Sender: FDA-Public Use
  Company Number: US-MERCK-0305USA02385

PATIENT
  Sex: Male

DRUGS (1)
  1. VIOXX [Suspect]
     Indication: MONARTHRITIS
     Route: 048
     Dates: start: 20010101

REACTIONS (6)
  - DIZZINESS [None]
  - GASTRIC ULCER [None]
  - HAEMOPTYSIS [None]
  - HAEMORRHAGE [None]
  - HELICOBACTER INFECTION [None]
  - PAIN [None]
